FAERS Safety Report 6416587-3 (Version None)
Quarter: 2009Q4

REPORT INFORMATION
  Report Type: 
  Country: None (occurrence: None)
  Receive Date: 20091022
  Receipt Date: 20091012
  Transmission Date: 20100525
  Serious: Yes (Death)
  Sender: FDA-Public Use
  Company Number: 2009AC000216

PATIENT
  Age: 74 Year
  Sex: Male
  Weight: 88.905 kg

DRUGS (17)
  1. DIGOXIN [Suspect]
     Dosage: 0.125 MG; QD; PO
     Route: 048
  2. METOPROLOL [Concomitant]
  3. LISINOPRIL [Concomitant]
  4. SOTALOL [Concomitant]
  5. ALLOPURINOL [Concomitant]
  6. WARFARIN SODIUM [Concomitant]
  7. FUROSEMIDE [Concomitant]
  8. FOLATE [Concomitant]
  9. DIAZEPAM [Concomitant]
  10. TYLENOL [Concomitant]
  11. COUMADIN [Concomitant]
  12. ZESTRIL [Concomitant]
  13. NITROGLYCERIN [Concomitant]
  14. LOPRESSOR [Concomitant]
  15. LORAZEPAM [Concomitant]
  16. LASIX [Concomitant]
  17. SOTALOL [Concomitant]

REACTIONS (22)
  - ACTINIC KERATOSIS [None]
  - ANAEMIA [None]
  - ANXIETY [None]
  - ARTERIOSCLEROSIS CORONARY ARTERY [None]
  - BENIGN PROSTATIC HYPERPLASIA [None]
  - CARDIAC ARREST [None]
  - CARDIAC FAILURE CONGESTIVE [None]
  - CARDIAC MURMUR [None]
  - CARDIOMYOPATHY [None]
  - CATARACT NUCLEAR [None]
  - ECONOMIC PROBLEM [None]
  - EMOTIONAL DISORDER [None]
  - HYPERLIPIDAEMIA [None]
  - INJURY [None]
  - ISCHAEMIC CARDIOMYOPATHY [None]
  - MULTIPLE INJURIES [None]
  - MYOCARDIAL INFARCTION [None]
  - PAIN [None]
  - RENAL FAILURE [None]
  - SOCIAL PROBLEM [None]
  - SUDDEN DEATH [None]
  - UPPER RESPIRATORY TRACT INFECTION [None]
